FAERS Safety Report 16008851 (Version 3)
Quarter: 2019Q2

REPORT INFORMATION
  Report Type: Report from Study
  Country: US (occurrence: US)
  Receive Date: 20190226
  Receipt Date: 20190611
  Transmission Date: 20190711
  Serious: Yes (Death, Other)
  Sender: FDA-Public Use
  Company Number: US-ACTELION-A-US2017-164659

PATIENT
  Age: 58 Year
  Sex: Male

DRUGS (6)
  1. FUROSEMIDE. [Concomitant]
     Active Substance: FUROSEMIDE
     Dosage: 20 MG, QD
     Dates: start: 20171211
  2. SILDENAFIL. [Concomitant]
     Active Substance: SILDENAFIL
     Dosage: 60 MG, TID
     Dates: start: 20140210
  3. LOSARTAN. [Concomitant]
     Active Substance: LOSARTAN
     Dosage: 50 MG, QD
     Dates: start: 20160628
  4. OPSUMIT [Suspect]
     Active Substance: MACITENTAN
     Indication: PULMONARY ARTERIAL HYPERTENSION
     Dosage: 10 MG, UNK
     Route: 048
     Dates: start: 20160607, end: 20190209
  5. TREPROSTINIL. [Concomitant]
     Active Substance: TREPROSTINIL
     Dosage: UNK
     Dates: start: 20171211
  6. TYVASO [Concomitant]
     Active Substance: TREPROSTINIL
     Dosage: UNK
     Dates: start: 201712

REACTIONS (14)
  - Tumour thrombosis [Fatal]
  - Hepatic function abnormal [Unknown]
  - Alanine aminotransferase [Unknown]
  - Oedema peripheral [Recovered/Resolved]
  - Hepatocellular carcinoma [Fatal]
  - Aspartate aminotransferase increased [Unknown]
  - Epistaxis [Recovered/Resolved]
  - Oedema [Recovered/Resolved]
  - Hepatic lesion [Unknown]
  - Disease progression [Fatal]
  - Dyspnoea exertional [Recovered/Resolved]
  - Blood bilirubin increased [Fatal]
  - Fluid overload [Recovered/Resolved]
  - Portal vein thrombosis [Unknown]

NARRATIVE: CASE EVENT DATE: 201712
